FAERS Safety Report 21962145 (Version 1)
Quarter: 2023Q1

REPORT INFORMATION
  Report Type: Spontaneous
  Country: US (occurrence: US)
  Receive Date: 20230207
  Receipt Date: 20230207
  Transmission Date: 20230418
  Serious: Yes (Life-Threatening, Hospitalization)
  Sender: FDA-Public Use
  Company Number: US-MYLANLABS-2023M1012707

PATIENT
  Age: 26 Year
  Sex: Male

DRUGS (6)
  1. EPINEPHRINE [Suspect]
     Active Substance: EPINEPHRINE
     Indication: Shock
     Dosage: UNK
     Route: 065
  2. NOREPINEPHRINE [Suspect]
     Active Substance: NOREPINEPHRINE
     Indication: Shock
     Dosage: UNK
     Route: 065
  3. PHENYLEPHRINE [Suspect]
     Active Substance: PHENYLEPHRINE HYDROCHLORIDE
     Indication: Shock
     Dosage: UNK
     Route: 065
  4. ANGIOTENSIN II [Suspect]
     Active Substance: ANGIOTENSIN II
     Indication: Shock
     Dosage: UNK
     Route: 065
  5. VASOPRESSIN [Suspect]
     Active Substance: VASOPRESSIN
     Indication: Shock
     Dosage: UNK
     Route: 065
  6. METHYLENE BLUE [Suspect]
     Active Substance: METHYLENE BLUE
     Indication: Distributive shock
     Dosage: UNK
     Route: 065

REACTIONS (3)
  - Drug ineffective [Unknown]
  - Lower gastrointestinal haemorrhage [Unknown]
  - Colitis ischaemic [Unknown]
